FAERS Safety Report 23179198 (Version 1)
Quarter: 2023Q4

REPORT INFORMATION
  Report Type: Spontaneous
  Country: US (occurrence: US)
  Receive Date: 20231113
  Receipt Date: 20231113
  Transmission Date: 20240110
  Serious: No
  Sender: FDA-Public Use
  Company Number: US-PFIZER INC-202300354320

PATIENT
  Age: 49 Year
  Sex: Male
  Weight: 117.93 kg

DRUGS (14)
  1. PAXLOVID [Suspect]
     Active Substance: NIRMATRELVIR\RITONAVIR
     Indication: COVID-19 treatment
     Dosage: 2 OF ONE PILL AND ONE OF ANOTHER; A TOTAL OF 3 PILLS IN THE MORNING AND 3 PILLS AT NIGHT FOR 5 DAYS
     Dates: start: 20231026, end: 20231030
  2. KEPPRA [Concomitant]
     Active Substance: LEVETIRACETAM
     Dosage: 500MG TWICE A DAY BY MOUTH
     Route: 048
     Dates: start: 2008
  3. LEVETIRACETAM [Concomitant]
     Active Substance: LEVETIRACETAM
     Dosage: GETS GENERIC SOMETIMES
  4. ATOMOXETINE HYDROCHLORIDE [Concomitant]
     Active Substance: ATOMOXETINE HYDROCHLORIDE
     Indication: Attention deficit hyperactivity disorder
     Dosage: 60MG A DAY BY MOUTH
     Route: 048
  5. LISINOPRIL [Concomitant]
     Active Substance: LISINOPRIL
     Indication: Hypertension
     Dosage: 20MG; TAKES HALF A PILL DAILY BY MOUTH
     Route: 048
  6. MELOXICAM [Concomitant]
     Active Substance: MELOXICAM
     Indication: Pain management
     Dosage: UNKNOWN
  7. TAMSULOSIN [Concomitant]
     Active Substance: TAMSULOSIN
     Indication: Prostatomegaly
     Dosage: .4MG; TAKES 1 PILL A DAY BY MOUTH
     Route: 048
  8. METHYL FOLATE [CALCIUM LEVOMEFOLATE] [Concomitant]
     Indication: Depression
     Dosage: UNK UNK, AS NEEDED
  9. ADEMETIONINE [Concomitant]
     Active Substance: ADEMETIONINE
     Indication: Depression
     Dosage: UNK UNK, AS NEEDED
  10. CANNABIDIOL\HERBALS [Concomitant]
     Active Substance: CANNABIDIOL\HERBALS
     Indication: Pain
     Dosage: UNK
  11. CANNABIDIOL\HERBALS [Concomitant]
     Active Substance: CANNABIDIOL\HERBALS
     Indication: Stress management
  12. CANNABIDIOL\HERBALS [Concomitant]
     Active Substance: CANNABIDIOL\HERBALS
     Indication: Anxiety
  13. B12 [MECOBALAMIN] [Concomitant]
     Dosage: UNK
  14. PYRIDOXINE HYDROCHLORIDE [Concomitant]
     Active Substance: PYRIDOXINE HYDROCHLORIDE
     Dosage: UNK

REACTIONS (1)
  - Therapeutic response unexpected [Unknown]
